FAERS Safety Report 19155477 (Version 2)
Quarter: 2021Q2

REPORT INFORMATION
  Report Type: Report from Study
  Country: None (occurrence: US)
  Receive Date: 20210420
  Receipt Date: 20210422
  Transmission Date: 20210717
  Serious: Yes (Hospitalization, Other)
  Sender: FDA-Public Use
  Company Number: US-ABBVIE-21K-163-3846448-00

PATIENT
  Sex: Female
  Weight: 85.35 kg

DRUGS (12)
  1. HUMIRA [Suspect]
     Active Substance: ADALIMUMAB
     Route: 058
     Dates: end: 2020
  2. HUMIRA [Suspect]
     Active Substance: ADALIMUMAB
     Indication: SARCOIDOSIS
     Route: 058
     Dates: start: 2018, end: 2019
  3. HUMIRA [Suspect]
     Active Substance: ADALIMUMAB
     Route: 058
  4. METROPOLYN [Concomitant]
     Indication: CARDIAC FAILURE CONGESTIVE
  5. MAGNESIUM [Concomitant]
     Active Substance: MAGNESIUM
     Indication: MUSCLE SPASMS
  6. HUMIRA [Suspect]
     Active Substance: ADALIMUMAB
     Route: 058
     Dates: start: 2020, end: 2020
  7. VITAMIN B12 [Concomitant]
     Active Substance: CYANOCOBALAMIN
     Indication: VITAMIN SUPPLEMENTATION
  8. SPIRONOLACTONE. [Concomitant]
     Active Substance: SPIRONOLACTONE
     Indication: FLUID OVERLOAD
  9. LEVOTHYROXINE. [Concomitant]
     Active Substance: LEVOTHYROXINE
     Indication: HYPOTHYROIDISM
  10. TORSEMIDE. [Concomitant]
     Active Substance: TORSEMIDE
     Indication: FLUID RETENTION
  11. ATORVASTATIN [Concomitant]
     Active Substance: ATORVASTATIN
     Indication: BLOOD CHOLESTEROL INCREASED
  12. BABY ASPIRIN [Concomitant]
     Active Substance: ASPIRIN
     Indication: CARDIOVASCULAR EVENT PROPHYLAXIS

REACTIONS (16)
  - Off label use [Not Recovered/Not Resolved]
  - Renal disorder [Not Recovered/Not Resolved]
  - Osteoarthritis [Recovered/Resolved]
  - Breast pain [Recovering/Resolving]
  - Drug ineffective [Not Recovered/Not Resolved]
  - Pneumonia [Unknown]
  - Spinal fusion surgery [Unknown]
  - Incorrect dose administered [Unknown]
  - Body height decreased [Unknown]
  - Sarcoidosis [Unknown]
  - Back pain [Not Recovered/Not Resolved]
  - Surgery [Unknown]
  - Pain [Unknown]
  - Fluid retention [Not Recovered/Not Resolved]
  - Carotid artery occlusion [Recovered/Resolved]
  - Pain in jaw [Not Recovered/Not Resolved]

NARRATIVE: CASE EVENT DATE: 2018
